FAERS Safety Report 14242977 (Version 1)
Quarter: 2017Q4

REPORT INFORMATION
  Report Type: Report from Study
  Country: US (occurrence: US)
  Receive Date: 20171201
  Receipt Date: 20171201
  Transmission Date: 20180321
  Serious: Yes (Hospitalization, Other)
  Sender: FDA-Public Use
  Company Number: US-JNJFOC-20171125612

PATIENT
  Age: 25 Year
  Sex: Female

DRUGS (11)
  1. KLONOPIN [Suspect]
     Active Substance: CLONAZEPAM
     Indication: ANXIETY
     Dosage: FREQUENCY: LMP TO 27 WEEKS
     Route: 065
  2. ZOLOFT [Suspect]
     Active Substance: SERTRALINE HYDROCHLORIDE
     Indication: ANXIETY
     Dosage: FREQUENCY: FROM 13 WEEKS TO DELIVERY
     Route: 065
  3. RISPERDAL [Suspect]
     Active Substance: RISPERIDONE
     Indication: BIPOLAR DISORDER
     Dosage: FREQUENCY: LAST MENSTRUAL PERIOD (LMP) TO 4 WEEKS
     Route: 065
  4. CLOZARIL [Suspect]
     Active Substance: CLOZAPINE
     Indication: BIPOLAR DISORDER
     Dosage: 17 WEEKS TO DELIVERY
     Route: 065
  5. CLOZARIL [Suspect]
     Active Substance: CLOZAPINE
     Indication: BIPOLAR DISORDER
     Dosage: FREQUENCY: LMP TO 2 WEEKS
     Route: 065
  6. CLOZARIL [Suspect]
     Active Substance: CLOZAPINE
     Indication: BIPOLAR DISORDER
     Dosage: FREQUENCY: 3 WEEKS TO 16 WEEKS
     Route: 065
  7. LAMICTAL [Suspect]
     Active Substance: LAMOTRIGINE
     Indication: BIPOLAR DISORDER
     Dosage: FREQUENCY: LMP TO DELIVERY
     Route: 065
  8. ZOLOFT [Suspect]
     Active Substance: SERTRALINE HYDROCHLORIDE
     Indication: DEPRESSION
     Dosage: FREQUENCY: FROM 13 WEEKS TO DELIVERY
     Route: 065
  9. RISPERDAL [Suspect]
     Active Substance: RISPERIDONE
     Indication: BIPOLAR DISORDER
     Dosage: FREQUENCY: 5 WEEKS TO 16 WEEKS
     Route: 065
  10. ABILIFY [Suspect]
     Active Substance: ARIPIPRAZOLE
     Indication: BIPOLAR DISORDER
     Dosage: FREQUENCY: LMP TO DELIVERY
     Route: 065
  11. LEVOTHYROXINE. [Suspect]
     Active Substance: LEVOTHYROXINE
     Indication: HYPOTHYROIDISM
     Dosage: FREQUENCY: LMP TO UNKNOWN
     Route: 065

REACTIONS (4)
  - Perinatal depression [Recovered/Resolved]
  - Nausea [Unknown]
  - Maternal exposure during pregnancy [Unknown]
  - Prolonged labour [Unknown]

NARRATIVE: CASE EVENT DATE: 2015
